FAERS Safety Report 8908075 (Version 1)
Quarter: 2012Q4

REPORT INFORMATION
  Report Type: 
  Country: US (occurrence: US)
  Receive Date: 20121113
  Receipt Date: 20121113
  Transmission Date: 20130627
  Serious: No
  Sender: FDA-Public Use
  Company Number: US-PFIZER INC-2012283002

PATIENT
  Sex: Female

DRUGS (2)
  1. LYRICA [Suspect]
     Indication: NEUROPATHY
     Dosage: 75 mg, 1x/day
     Route: 048
     Dates: start: 201205
  2. LYRICA [Suspect]
     Indication: SEIZURES

REACTIONS (1)
  - Tremor [Not Recovered/Not Resolved]
